FAERS Safety Report 7229608-5 (Version None)
Quarter: 2011Q1

REPORT INFORMATION
  Report Type: 
  Country: None (occurrence: None)
  Receive Date: 20110117
  Receipt Date: 20110112
  Transmission Date: 20110831
  Serious: Yes (Hospitalization)
  Sender: FDA-Public Use
  Company Number: NL-MEDIMMUNE-MEDI-0012212

PATIENT
  Sex: Male

DRUGS (3)
  1. SYNAGIS [Suspect]
     Route: 030
     Dates: start: 20101119, end: 20101216
  2. FUROSEMIDE [Concomitant]
     Dates: start: 20100101
  3. SPIRONOLACTONE [Concomitant]
     Dates: start: 20100101

REACTIONS (2)
  - WHEEZING [None]
  - SENSE OF OPPRESSION [None]
